FAERS Safety Report 8978979 (Version 1)
Quarter: 2012Q4

REPORT INFORMATION
  Report Type: 
  Country: GB (occurrence: GB)
  Receive Date: 20121220
  Receipt Date: 20121220
  Transmission Date: 20130627
  Serious: Yes (Hospitalization)
  Sender: FDA-Public Use
  Company Number: GB-ABBOTT-12P-167-1022920-00

PATIENT
  Age: 55 Year
  Sex: Male
  Weight: 84 kg

DRUGS (9)
  1. CLARITHROMYCIN [Suspect]
     Indication: LOWER RESPIRATORY TRACT INFECTION
     Route: 048
     Dates: start: 20121121, end: 20121122
  2. ZOPICLONE [Concomitant]
     Indication: PRODUCT USED FOR UNKNOWN INDICATION
  3. EICOSAPENTAENOIC ACID [Concomitant]
     Indication: PRODUCT USED FOR UNKNOWN INDICATION
  4. RAMIPRIL [Concomitant]
     Indication: PRODUCT USED FOR UNKNOWN INDICATION
  5. ORLISTAT [Concomitant]
     Indication: PRODUCT USED FOR UNKNOWN INDICATION
  6. METFORMIN [Concomitant]
     Indication: PRODUCT USED FOR UNKNOWN INDICATION
  7. PIOGLITAZONE [Concomitant]
     Indication: PRODUCT USED FOR UNKNOWN INDICATION
  8. SITAGLIPTIN [Concomitant]
     Indication: PRODUCT USED FOR UNKNOWN INDICATION
  9. LORATADINE [Concomitant]
     Indication: PRODUCT USED FOR UNKNOWN INDICATION

REACTIONS (3)
  - Grand mal convulsion [Recovered/Resolved with Sequelae]
  - Confusional state [Recovered/Resolved with Sequelae]
  - Psychotic disorder [Recovered/Resolved with Sequelae]
